FAERS Safety Report 24978621 (Version 2)
Quarter: 2025Q3

REPORT INFORMATION
  Report Type: Report from Study
  Country: EU (occurrence: EU)
  Receive Date: 20250218
  Receipt Date: 20250730
  Transmission Date: 20251021
  Serious: Yes (Death)
  Sender: ABBVIE
  Company Number: EU-JNJFOC-20250226626

PATIENT
  Age: 77 Year
  Sex: Male

DRUGS (5)
  1. IBRUTINIB [Suspect]
     Active Substance: IBRUTINIB
     Indication: Chronic lymphocytic leukaemia
     Dosage: TEMPORARY DISCONTINUATION AS PER PATIENT WISH
     Route: 048
     Dates: start: 20241030, end: 20241126
  2. IBRUTINIB [Suspect]
     Active Substance: IBRUTINIB
     Indication: Chronic lymphocytic leukaemia
     Dosage: THE CLL DOES NOT CURRENTLY HAVE TO BE TREATED, VALUE AND NORMAL LEUKOCYTES FOR STABLE HB. OVERALL...
     Route: 048
     Dates: start: 20241217, end: 20241229
  3. IBRUTINIB [Suspect]
     Active Substance: IBRUTINIB
     Indication: Chronic lymphocytic leukaemia
     Dosage: OCURENCE OF ADVERSE EVENTS
     Route: 048
     Dates: start: 20240723, end: 20241014
  4. HUMAN RED BLOOD CELL [Concomitant]
     Active Substance: HUMAN RED BLOOD CELL
     Indication: Anaemia
     Dates: start: 20241126, end: 20241203
  5. MEROPENEM [Concomitant]
     Active Substance: MEROPENEM
     Indication: Antibiotic therapy
     Dates: start: 20241102, end: 20241112

REACTIONS (1)
  - Death [Fatal]

NARRATIVE: CASE EVENT DATE: 20250112
